FAERS Safety Report 8089405-8 (Version None)
Quarter: 2012Q1

REPORT INFORMATION
  Report Type: 
  Country: None (occurrence: None)
  Receive Date: 20120128
  Receipt Date: 20110620
  Transmission Date: 20120608
  Serious: No
  Sender: FDA-Public Use
  Company Number: US-ABBOTT-11P-163-0723771-00

PATIENT
  Sex: Male

DRUGS (12)
  1. LISINOPRIL [Concomitant]
     Indication: BLOOD PRESSURE
  2. HUMIRA [Suspect]
     Indication: RHEUMATOID ARTHRITIS
     Route: 058
     Dates: start: 20110414
  3. UNKNOWN MEDICATION [Concomitant]
     Indication: PAIN
  4. GABAPENTIN [Concomitant]
     Indication: NEURALGIA
  5. AMLODIPINE [Concomitant]
     Indication: PRODUCT USED FOR UNKNOWN INDICATION
  6. FOLIC ACID [Concomitant]
     Indication: PRODUCT USED FOR UNKNOWN INDICATION
  7. METHOTREXATE [Concomitant]
     Indication: RHEUMATOID ARTHRITIS
     Dosage: 8 PILLS, ONCE WEEKLY
  8. ASPIRIN [Concomitant]
     Indication: PRODUCT USED FOR UNKNOWN INDICATION
     Dosage: ONCE DAILY
  9. CELEXA [Concomitant]
     Indication: DEPRESSION
  10. GABAPENTIN [Concomitant]
     Indication: PERIPHERAL VASCULAR DISORDER
  11. PREDNISONE TAB [Concomitant]
     Indication: RHEUMATOID ARTHRITIS
  12. OXYCODONE HCL [Concomitant]
     Indication: PRODUCT USED FOR UNKNOWN INDICATION
     Dosage: ONCE DAILY

REACTIONS (6)
  - FATIGUE [None]
  - ABDOMINAL PAIN [None]
  - NAUSEA [None]
  - HYPOAESTHESIA [None]
  - PARAESTHESIA [None]
  - HOT FLUSH [None]
